FAERS Safety Report 8674577 (Version 2)
Quarter: 2013Q1

REPORT INFORMATION
  Report Type: Spontaneous
  Country: FR (occurrence: FR)
  Receive Date: 20120720
  Receipt Date: 20130204
  Transmission Date: 20140127
  Serious: Yes (Life-Threatening, Other)
  Sender: FDA-Public Use
  Company Number: FR-AMGEN-FRASP2012044339

PATIENT
  Age: 64 Year
  Sex: Male
  Weight: 80 kg

DRUGS (5)
  1. ENBREL [Suspect]
     Indication: RHEUMATOID ARTHRITIS
     Dosage: 50 MG, WEEKLY
     Route: 058
     Dates: start: 201106, end: 201205
  2. METOJECT [Concomitant]
     Indication: RHEUMATOID ARTHRITIS
     Dosage: 20 MG, WEEKLY
     Route: 058
     Dates: start: 2002, end: 201206
  3. CORTANCYL [Concomitant]
     Indication: RHEUMATOID ARTHRITIS
     Dosage: 5 MG, 1X/DAY
     Route: 048
     Dates: start: 2002
  4. FOSAVANCE [Concomitant]
     Indication: PROPHYLAXIS
     Dosage: 70 MG, 1X/DAY
     Route: 048
     Dates: start: 2002, end: 201207
  5. TEGRETOL [Concomitant]
     Dosage: UNK
     Route: 048
     Dates: start: 1975

REACTIONS (8)
  - Refractory anaemia with ringed sideroblasts [Unknown]
  - Thrombocytosis [Unknown]
  - Oesophageal carcinoma stage 0 [Recovered/Resolved]
  - Adrenal neoplasm [Unknown]
  - Splenomegaly [Unknown]
  - Oesophagitis [Unknown]
  - Diverticulum gastric [Unknown]
  - Large intestine polyp [Unknown]
